FAERS Safety Report 10583229 (Version 1)
Quarter: 2014Q4

REPORT INFORMATION
  Report Type: Spontaneous
  Country: CH (occurrence: CH)
  Receive Date: 20141114
  Receipt Date: 20141114
  Transmission Date: 20150529
  Serious: Yes (Hospitalization, Other)
  Sender: FDA-Public Use
  Company Number: CH-009507513-1411CHE001551

PATIENT
  Age: 80 Year
  Weight: 98 kg

DRUGS (16)
  1. TIENAM [Suspect]
     Active Substance: CILASTATIN SODIUM\IMIPENEM
     Indication: ORCHITIS
     Dosage: 500 MG, TID
     Route: 041
     Dates: start: 20140903, end: 20140905
  2. INSULATARD HM [Concomitant]
     Indication: DIABETES MELLITUS
     Dosage: 10 IU, 1 PER 1 DAY
     Route: 058
     Dates: start: 20140906, end: 20140919
  3. GLUCOPHAGE [Concomitant]
     Active Substance: METFORMIN HYDROCHLORIDE
     Indication: DIABETES MELLITUS
     Dosage: 500 MG, 3 PER 1 DAY, TREATMENT AT HOME
     Route: 048
     Dates: end: 20140905
  4. BACTRIM [Suspect]
     Active Substance: SULFAMETHOXAZOLE\TRIMETHOPRIM
     Indication: ORCHITIS
     Dosage: 160 MG, BID
     Route: 048
     Dates: start: 20140906, end: 20140917
  5. SERTRALINE HYDROCHLORIDE. [Suspect]
     Active Substance: SERTRALINE HYDROCHLORIDE
     Indication: DEPRESSION
     Dosage: 50 MG, ONCE DAILY
     Route: 048
     Dates: end: 20140822
  6. DETRUSITOL [Concomitant]
     Active Substance: TOLTERODINE TARTRATE
     Indication: NEUROGENIC BLADDER
     Dosage: 4 MG, 1 PER 1 DAY, TREATMENT AT HOME
     Route: 048
     Dates: end: 20140918
  7. MODURETIC 5-50 [Concomitant]
     Active Substance: AMILORIDE HYDROCHLORIDE\HYDROCHLOROTHIAZIDE
     Indication: ESSENTIAL HYPERTENSION
     Dosage: 1 DF, 1 PER 1 DAY,TREATMENT AT HOME, STRENGTH 5/50
     Route: 048
     Dates: end: 20140829
  8. REMINYL [Concomitant]
     Active Substance: GALANTAMINE
     Indication: COGNITIVE DISORDER
     Dosage: 16 MG, 1 PER 1 DAY, TREATMENT AT HOME
     Route: 048
     Dates: end: 20140828
  9. SERTRALINE HYDROCHLORIDE. [Suspect]
     Active Substance: SERTRALINE HYDROCHLORIDE
     Dosage: 50 MG, ONCE DAILY
     Route: 048
     Dates: start: 20140906
  10. ENALAPRIL MALEATE. [Concomitant]
     Active Substance: ENALAPRIL MALEATE
     Indication: ESSENTIAL HYPERTENSION
     Dosage: 5 MG, 1 PER 1 DAY
     Route: 048
     Dates: start: 20140830, end: 20140919
  11. CLEXANE (ENOXAPARIN SODIUM) [Concomitant]
     Active Substance: ENOXAPARIN SODIUM
     Indication: THROMBOSIS PROPHYLAXIS
     Dosage: 40 MG, 1 PER 1 DAY
     Route: 058
     Dates: start: 20140822
  12. ZYLORIC [Concomitant]
     Active Substance: ALLOPURINOL
     Indication: GOUT
     Dosage: 100 MG, 1 PER 1 DAY, TREATMENT AT HOME
     Route: 048
  13. FERRUM (FERROUS FUMARATE) [Concomitant]
     Indication: IRON DEFICIENCY ANAEMIA
     Dosage: 100 MG, PER 1 DAY, TREATMENT AT HOME
     Route: 048
     Dates: end: 20140917
  14. CHOLECALCIFEROL [Concomitant]
     Active Substance: CHOLECALCIFEROL
     Indication: HYPOVITAMINOSIS
     Dosage: 50000 IU, 1 PER 1 WEEK
     Route: 048
     Dates: start: 20140826, end: 20140910
  15. NEXIUM [Concomitant]
     Active Substance: ESOMEPRAZOLE MAGNESIUM
     Indication: HIATUS HERNIA
     Dosage: 20 MG, 2 PER 1 DAY, TREATMENT AT HOME
     Route: 048
  16. BUPRENORPHINE HYDROCHLORIDE. [Concomitant]
     Active Substance: BUPRENORPHINE HYDROCHLORIDE
     Indication: PAIN
     Dosage: 0.1 MG, T3 PER 1 DAY, INTAKE AS NECESSARY IN CASE OF PAIN
     Route: 048
     Dates: start: 20140905

REACTIONS (2)
  - Cholestasis [Recovered/Resolved]
  - Encephalopathy [Recovered/Resolved]

NARRATIVE: CASE EVENT DATE: 20140916
